FAERS Safety Report 5424701-1 (Version None)
Quarter: 2007Q3

REPORT INFORMATION
  Report Type: 
  Country: None (occurrence: None)
  Receive Date: 20070822
  Receipt Date: 20070822
  Transmission Date: 20080115
  Serious: No
  Sender: FDA-Public Use
  Company Number: None

PATIENT
  Age: 28 Year
  Sex: Female
  Weight: 49.2 kg

DRUGS (16)
  1. CYTARABINE [Suspect]
     Indication: ACUTE MYELOID LEUKAEMIA
     Dosage: 1490MG IV QD X 5D
     Route: 042
     Dates: start: 20070614, end: 20070618
  2. CLOFARABINE [Suspect]
     Indication: ACUTE MYELOID LEUKAEMIA
     Dosage: 60MG IV QD X 5D
     Route: 042
     Dates: start: 20070615, end: 20070619
  3. CEFEPIME [Concomitant]
  4. FLAGYL [Concomitant]
  5. CASPOFUNGIN [Concomitant]
  6. COMBIPATCH [Concomitant]
  7. NYSTATIN [Concomitant]
  8. COLACE [Concomitant]
  9. INSULIN [Concomitant]
  10. SCOPOLAMINE [Concomitant]
  11. DEXAMETHASONE [Concomitant]
  12. VANCOMYCIN [Concomitant]
  13. TOBRAMYCIN [Concomitant]
  14. ACTIVASE [Concomitant]
  15. ONDANSETRON [Concomitant]
  16. HYDROCORTISONE [Concomitant]

REACTIONS (4)
  - ODYNOPHAGIA [None]
  - OEDEMA PERIPHERAL [None]
  - PAIN IN EXTREMITY [None]
  - PALMAR-PLANTAR ERYTHRODYSAESTHESIA SYNDROME [None]
